FAERS Safety Report 8906091 (Version 3)
Quarter: 2012Q4

REPORT INFORMATION
  Report Type: 
  Country: US (occurrence: US)
  Receive Date: 20121111
  Receipt Date: 20121217
  Transmission Date: 20130627
  Serious: No
  Sender: FDA-Public Use
  Company Number: US-009507513-1211USA003327

PATIENT
  Age: 62 None
  Sex: Female

DRUGS (3)
  1. PEGINTRON [Suspect]
     Indication: HEPATITIS C
     Dosage: UNK
     Route: 058
     Dates: start: 20121102, end: 20121205
  2. RIBAVIRIN [Suspect]
     Indication: HEPATITIS C
     Dosage: UNK
     Route: 048
     Dates: start: 20121103, end: 20121205
  3. TELAPREVIR [Concomitant]
     Indication: HEPATITIS C
     Dosage: UNK
     Dates: start: 20121103, end: 20121205

REACTIONS (5)
  - Pyrexia [Unknown]
  - Injection site reaction [Unknown]
  - Nausea [Unknown]
  - Fatigue [Unknown]
  - Drug ineffective [Unknown]
